FAERS Safety Report 7517009-1 (Version None)
Quarter: 2011Q2

REPORT INFORMATION
  Report Type: 
  Country: None (occurrence: None)
  Receive Date: 20110526
  Receipt Date: 20110526
  Transmission Date: 20111010
  Serious: Yes (Other)
  Sender: FDA-Public Use
  Company Number: None

PATIENT
  Age: 45 Year
  Sex: Male
  Weight: 111.4 kg

DRUGS (1)
  1. TRAVATAN [Suspect]
     Indication: OCULAR HYPERTENSION
     Dosage: 1 DROP NIGHTLY
     Route: 046
     Dates: start: 20110506

REACTIONS (3)
  - BLOOD PRESSURE INCREASED [None]
  - PALPITATIONS [None]
  - ANXIETY [None]
